FAERS Safety Report 25166508 (Version 1)
Quarter: 2025Q2

REPORT INFORMATION
  Report Type: Spontaneous
  Country: US (occurrence: US)
  Receive Date: 20250407
  Receipt Date: 20250407
  Transmission Date: 20250717
  Serious: No
  Sender: BRISTOL MYERS SQUIBB
  Company Number: US-BRISTOL-MYERS SQUIBB COMPANY-2025-051048

PATIENT
  Age: 73 Year
  Sex: Female

DRUGS (1)
  1. POMALYST [Suspect]
     Active Substance: POMALIDOMIDE
     Indication: Plasma cell myeloma
     Route: 048

REACTIONS (6)
  - Nasopharyngitis [Unknown]
  - Product dose omission issue [Unknown]
  - Fatigue [Unknown]
  - Cough [Unknown]
  - Rhinorrhoea [Unknown]
  - Illness [Unknown]

NARRATIVE: CASE EVENT DATE: 20250301
